FAERS Safety Report 22233438 (Version 1)
Quarter: 2023Q2

REPORT INFORMATION
  Report Type: Spontaneous
  Country: US (occurrence: None)
  Receive Date: 20230419
  Receipt Date: 20230419
  Transmission Date: 20230722
  Serious: Yes (Disabling, Other)
  Sender: FDA-Public Use
  Company Number: None

PATIENT
  Age: 44 Year
  Sex: Female
  Weight: 58.5 kg

DRUGS (8)
  1. PLEGRIDY [Suspect]
     Active Substance: PEGINTERFERON BETA-1A
     Indication: Multiple sclerosis
     Dates: start: 20230127, end: 20230407
  2. SINGULAIR [Concomitant]
     Active Substance: MONTELUKAST SODIUM
  3. EFFEXOR [Concomitant]
     Active Substance: VENLAFAXINE HYDROCHLORIDE
  4. AMITRIPTYLINE [Concomitant]
     Active Substance: AMITRIPTYLINE
  5. BACLOFEN [Concomitant]
     Active Substance: BACLOFEN
  6. ZYRTEC [Concomitant]
     Active Substance: CETIRIZINE HYDROCHLORIDE
  7. VITAMIN D [Concomitant]
     Active Substance: VITAMIN D NOS
  8. VITAMIN K [Concomitant]
     Active Substance: PHYTONADIONE

REACTIONS (11)
  - Urticaria [None]
  - Pruritus [None]
  - Pruritus [None]
  - Erythema [None]
  - Skin burning sensation [None]
  - Dry skin [None]
  - Skin exfoliation [None]
  - Chest discomfort [None]
  - Tension headache [None]
  - Dyspnoea [None]
  - Contusion [None]

NARRATIVE: CASE EVENT DATE: 20230412
